FAERS Safety Report 4571911-1 (Version None)
Quarter: 2005Q1

REPORT INFORMATION
  Report Type: 
  Country: None (occurrence: None)
  Receive Date: 20050207
  Receipt Date: 20050203
  Transmission Date: 20050727
  Serious: Yes (Other)
  Sender: FDA-Public Use
  Company Number: PHRM2005FR00719

PATIENT
  Sex: Male

DRUGS (2)
  1. CORTICOSTEROID NOS [Concomitant]
     Indication: NEPHROTIC SYNDROME
  2. ZOMETA [Suspect]
     Indication: OSTEONECROSIS
     Dosage: 4 MG, ONCE/SINGLE
     Route: 042

REACTIONS (3)
  - ARTHRALGIA [None]
  - JOINT EFFUSION [None]
  - MOBILITY DECREASED [None]
